FAERS Safety Report 25574728 (Version 1)
Quarter: 2025Q3

REPORT INFORMATION
  Report Type: Spontaneous
  Country: GB (occurrence: GB)
  Receive Date: 20250718
  Receipt Date: 20250718
  Transmission Date: 20251021
  Serious: Yes (Other)
  Sender: CIPLA
  Company Number: GB-MHRA-MED-202507051100456280-CQHFB

PATIENT

DRUGS (1)
  1. FINASTERIDE [Suspect]
     Active Substance: FINASTERIDE
     Indication: Androgenetic alopecia
     Dosage: 1 MILLIGRAM, QD
     Route: 065
     Dates: start: 20230901, end: 20240301

REACTIONS (2)
  - Depressed mood [Not Recovered/Not Resolved]
  - Sexual dysfunction [Not Recovered/Not Resolved]
